FAERS Safety Report 6348485-8 (Version None)
Quarter: 2009Q3

REPORT INFORMATION
  Report Type: 
  Country: None (occurrence: None)
  Receive Date: 20090911
  Receipt Date: 20090902
  Transmission Date: 20100115
  Serious: No
  Sender: FDA-Public Use
  Company Number: US-B.I. PHARMACEUTICALS,INC./RIDGEFIELD-2009-BP-09812BP

PATIENT
  Sex: Male

DRUGS (8)
  1. SPIRIVA [Suspect]
     Indication: CHRONIC OBSTRUCTIVE PULMONARY DISEASE
     Dosage: 18 MCG
     Route: 055
     Dates: start: 20080101
  2. METOPROLOL TARTRATE [Concomitant]
     Indication: HYPERTENSION
  3. LOVASTATIN [Concomitant]
     Indication: BLOOD CHOLESTEROL INCREASED
  4. ASPIRIN [Concomitant]
     Indication: ANTICOAGULANT THERAPY
  5. ASMANEX TWISTHALER [Concomitant]
     Indication: ASTHMA
     Dates: start: 20070101
  6. COMBIVENT [Concomitant]
  7. VITAMINS [Concomitant]
  8. CALCIUM TABLETS [Concomitant]

REACTIONS (2)
  - DRUG INEFFECTIVE [None]
  - DYSPNOEA [None]
